FAERS Safety Report 23307715 (Version 1)
Quarter: 2023Q4

REPORT INFORMATION
  Report Type: Spontaneous
  Country: US (occurrence: None)
  Receive Date: 20231215
  Receipt Date: 20231215
  Transmission Date: 20240110
  Serious: Yes (Other)
  Sender: FDA-Public Use
  Company Number: None

PATIENT
  Age: 71 Year
  Sex: Male
  Weight: 74.7 kg

DRUGS (2)
  1. WELIREG [Suspect]
     Active Substance: BELZUTIFAN
  2. UNSPECIFIED INGREDIENT [Concomitant]
     Active Substance: UNSPECIFIED INGREDIENT

REACTIONS (3)
  - Anaemia [None]
  - Transfusion [None]
  - Gait disturbance [None]

NARRATIVE: CASE EVENT DATE: 20230701
